FAERS Safety Report 7516545-1 (Version None)
Quarter: 2011Q2

REPORT INFORMATION
  Report Type: 
  Country: None (occurrence: None)
  Receive Date: 20110601
  Receipt Date: 20110517
  Transmission Date: 20111010
  Serious: Yes (Other)
  Sender: FDA-Public Use
  Company Number: B0721088A

PATIENT

DRUGS (1)
  1. PAZOPANIB [Suspect]

REACTIONS (5)
  - ALOPECIA [None]
  - DIARRHOEA [None]
  - HYPERTENSION [None]
  - HYPERTHYROIDISM [None]
  - HAIR COLOUR CHANGES [None]
